FAERS Safety Report 11250099 (Version 1)
Quarter: 2015Q3

REPORT INFORMATION
  Report Type: Spontaneous
  Country: US (occurrence: US)
  Receive Date: 20150708
  Receipt Date: 20150708
  Transmission Date: 20151125
  Serious: No
  Sender: FDA-Public Use
  Company Number: US-ELI_LILLY_AND_COMPANY-US201005005664

PATIENT
  Age: 49 Year
  Sex: Female

DRUGS (2)
  1. SYMBYAX [Suspect]
     Active Substance: FLUOXETINE HYDROCHLORIDE\OLANZAPINE
     Indication: BIPOLAR DISORDER
     Dosage: UNK, UNKNOWN
     Route: 065
     Dates: start: 201004, end: 20100508
  2. LITHIUM. [Concomitant]
     Active Substance: LITHIUM

REACTIONS (2)
  - Dysarthria [Unknown]
  - General symptom [Unknown]

NARRATIVE: CASE EVENT DATE: 20100508
